FAERS Safety Report 18953138 (Version 2)
Quarter: 2021Q4

REPORT INFORMATION
  Report Type: Report from Study
  Country: US (occurrence: US)
  Receive Date: 20210301
  Receipt Date: 20211104
  Transmission Date: 20220303
  Serious: Yes (Hospitalization)
  Sender: FDA-Public Use
  Company Number: US-TAKEDA-2021TUS012708

PATIENT
  Sex: Female
  Weight: 63 kg

DRUGS (21)
  1. HUMAN IMMUNOGLOBULIN G [Suspect]
     Active Substance: HUMAN IMMUNOGLOBULIN G
     Indication: Chronic inflammatory demyelinating polyradiculoneuropathy
     Dosage: 40 GRAM, Q4WEEKS
     Route: 042
     Dates: start: 20190626
  2. ACETAMINOPHEN [Concomitant]
     Active Substance: ACETAMINOPHEN
  3. DIPHENHYDRAMINE [Concomitant]
     Active Substance: DIPHENHYDRAMINE
  4. SODIUM CHLORIDE [Concomitant]
     Active Substance: SODIUM CHLORIDE
  5. EPINEPHRINE [Concomitant]
     Active Substance: EPINEPHRINE
  6. LYSINE [Concomitant]
     Active Substance: LYSINE
  7. PREDNISONE [Concomitant]
     Active Substance: PREDNISONE
  8. PROPRANOLOL [Concomitant]
     Active Substance: PROPRANOLOL HYDROCHLORIDE
  9. TUMS ULTRA [Concomitant]
     Active Substance: CALCIUM CARBONATE
  10. CYANOCOBALAMIN [Concomitant]
     Active Substance: CYANOCOBALAMIN
  11. PROGESTERONE [Concomitant]
     Active Substance: PROGESTERONE
  12. GABAPENTIN [Concomitant]
     Active Substance: GABAPENTIN
  13. DEXILANT [Concomitant]
     Active Substance: DEXLANSOPRAZOLE
  14. VITAMINS [Concomitant]
     Active Substance: VITAMINS
  15. PAROXETINE MESYLATE [Concomitant]
     Active Substance: PAROXETINE MESYLATE
  16. BACLOFEN [Concomitant]
     Active Substance: BACLOFEN
  17. VITAMIN D2 [Concomitant]
     Active Substance: ERGOCALCIFEROL
  18. MINIVELLE [Concomitant]
     Active Substance: ESTRADIOL
  19. ACRIVASTINE [Concomitant]
     Active Substance: ACRIVASTINE
  20. TYLENOL [Concomitant]
     Active Substance: ACETAMINOPHEN
  21. LACTASE [Concomitant]
     Active Substance: LACTASE
     Route: 065

REACTIONS (3)
  - Appendix disorder [Unknown]
  - Weight decreased [Unknown]
  - Rash [Unknown]
